FAERS Safety Report 26043404 (Version 1)
Quarter: 2025Q4

REPORT INFORMATION
  Report Type: Spontaneous
  Country: EU (occurrence: EU)
  Receive Date: 20251113
  Receipt Date: 20251113
  Transmission Date: 20260118
  Serious: Yes (Death, Other)
  Sender: JOHNSON AND JOHNSON
  Company Number: None

PATIENT
  Age: 53 Year
  Sex: Male
  Weight: 72 kg

DRUGS (8)
  1. RISPERIDONE [Suspect]
     Active Substance: RISPERIDONE
     Indication: Poisoning deliberate
     Dosage: 60 MG
     Route: 048
     Dates: start: 20250812, end: 20250812
  2. RISPERIDONE [Suspect]
     Active Substance: RISPERIDONE
  3. RISPERIDONE [Suspect]
     Active Substance: RISPERIDONE
  4. RISPERIDONE [Suspect]
     Active Substance: RISPERIDONE
  5. RISPERIDONE [Suspect]
     Active Substance: RISPERIDONE
  6. RISPERIDONE [Suspect]
     Active Substance: RISPERIDONE
  7. BACLOFEN [Suspect]
     Active Substance: BACLOFEN
     Indication: Poisoning deliberate
     Dosage: 440 MG
     Route: 048
     Dates: start: 20250812, end: 20250812
  8. CYAMEMAZINE [Suspect]
     Active Substance: CYAMEMAZINE
     Indication: Poisoning deliberate
     Dosage: 300 MG
     Route: 048
     Dates: start: 20250812, end: 20250812

REACTIONS (3)
  - Coma [Fatal]
  - Multiple organ dysfunction syndrome [Fatal]
  - Poisoning deliberate [Recovered/Resolved]

NARRATIVE: CASE EVENT DATE: 20250812
